FAERS Safety Report 25478934 (Version 1)
Quarter: 2025Q2

REPORT INFORMATION
  Report Type: Spontaneous
  Country: KR (occurrence: KR)
  Receive Date: 20250625
  Receipt Date: 20250625
  Transmission Date: 20250717
  Serious: Yes (Life-Threatening)
  Sender: MYLAN
  Company Number: KR-MYLANLABS-2025M1053560

PATIENT
  Sex: Female

DRUGS (6)
  1. CELEBREX [Suspect]
     Active Substance: CELECOXIB
     Indication: Fatigue
     Dosage: 1 DOSAGE FORM, QD
  2. LIMAPROST [Concomitant]
     Active Substance: LIMAPROST
  3. ESCITALOPRAM OXALATE [Concomitant]
     Active Substance: ESCITALOPRAM OXALATE
  4. PANTOPRAZOLE SODIUM [Concomitant]
     Active Substance: PANTOPRAZOLE SODIUM
  5. MELATONIN [Concomitant]
     Active Substance: MELATONIN
  6. AMITRIPTYLINE HYDROCHLORIDE [Concomitant]
     Active Substance: AMITRIPTYLINE HYDROCHLORIDE

REACTIONS (2)
  - Anaphylactic reaction [Recovering/Resolving]
  - Off label use [Unknown]

NARRATIVE: CASE EVENT DATE: 20230421
